FAERS Safety Report 7468562-8 (Version None)
Quarter: 2011Q2

REPORT INFORMATION
  Report Type: 
  Country: None (occurrence: None)
  Receive Date: 20110509
  Receipt Date: 20110505
  Transmission Date: 20111010
  Serious: Yes (Hospitalization)
  Sender: FDA-Public Use
  Company Number: US-BRISTOL-MYERS SQUIBB COMPANY-15714421

PATIENT
  Age: 85 Year
  Sex: Male

DRUGS (7)
  1. PREDNISONE TAB [Concomitant]
     Dosage: 70MG,60MG,50MG,40MG,30MG,20MG,10MG,5MG FOR 7 DAYS
     Route: 048
  2. FLUCONAZOLE [Concomitant]
     Route: 048
  3. SENNA [Concomitant]
     Dosage: 1DF=1TAB
     Route: 048
  4. FOLIC ACID [Concomitant]
     Route: 048
  5. LYRICA [Concomitant]
     Route: 048
  6. YERVOY [Suspect]
     Indication: MALIGNANT MELANOMA
     Route: 042
     Dates: start: 20080101, end: 20110406
  7. CIPROFLOXACIN [Concomitant]
     Dosage: Q12 HRS
     Route: 048

REACTIONS (3)
  - URINARY TRACT INFECTION [None]
  - MUCOSAL INFLAMMATION [None]
  - THROMBOCYTOPENIA [None]
